FAERS Safety Report 7268598-6 (Version None)
Quarter: 2011Q1

REPORT INFORMATION
  Report Type: 
  Country: None (occurrence: None)
  Receive Date: 20110201
  Receipt Date: 20110104
  Transmission Date: 20110831
  Serious: Yes (Hospitalization)
  Sender: FDA-Public Use
  Company Number: US-BAYER-200927796NA

PATIENT
  Sex: Female
  Weight: 68.027 kg

DRUGS (7)
  1. FLUCONAZOLE [Concomitant]
     Dosage: UNK
     Dates: start: 20060101
  2. UNCODEABLE ^UNCLASSIFIABLE^ [Concomitant]
  3. YASMIN [Suspect]
     Indication: CONTRACEPTION
     Dosage: UNK
     Dates: start: 20060127, end: 20080726
  4. AZITHROMYCIN [Concomitant]
     Dosage: UNK
     Dates: start: 20070101
  5. ADDERALL 10 [Concomitant]
     Indication: ATTENTION DEFICIT/HYPERACTIVITY DISORDER
     Dosage: UNK
     Dates: start: 20071201, end: 20080801
  6. MOBIC [Concomitant]
     Dosage: UNK
     Dates: start: 20060101, end: 20080101
  7. IBUPROFENO [Concomitant]

REACTIONS (8)
  - THROMBOCYTOPENIA [None]
  - INJURY [None]
  - DEEP VEIN THROMBOSIS [None]
  - PAIN IN EXTREMITY [None]
  - PULMONARY EMBOLISM [None]
  - THROMBOPHLEBITIS SUPERFICIAL [None]
  - PAIN [None]
  - JOINT SWELLING [None]
